FAERS Safety Report 4708614-6 (Version None)
Quarter: 2005Q3

REPORT INFORMATION
  Report Type: 
  Country: None (occurrence: None)
  Receive Date: 20050707
  Receipt Date: 20050502
  Transmission Date: 20060218
  Serious: Yes (Hospitalization)
  Sender: FDA-Public Use
  Company Number: 200511505FR

PATIENT
  Age: 57 Year
  Sex: Female
  Weight: 55 kg

DRUGS (8)
  1. CLAFORAN [Suspect]
     Indication: ESCHERICHIA INFECTION
     Route: 042
     Dates: start: 20050210, end: 20050210
  2. CLAFORAN [Suspect]
     Indication: MENINGITIS
     Route: 042
     Dates: start: 20050210, end: 20050210
  3. OFLOCET [Suspect]
     Indication: MENINGITIS
     Route: 048
     Dates: start: 20050211, end: 20050222
  4. OFLOCET [Suspect]
     Indication: SEPSIS
     Route: 048
     Dates: start: 20050211, end: 20050222
  5. GENTAMICIN [Suspect]
     Indication: ESCHERICHIA INFECTION
     Route: 042
     Dates: start: 20050210, end: 20050210
  6. CLAMOXYL [Suspect]
     Dosage: DOSE: 1,5
     Route: 042
     Dates: start: 20050210, end: 20050210
  7. ZOVIRAX [Suspect]
     Route: 042
     Dates: start: 20050210, end: 20050210
  8. ROCEPHIN [Suspect]
     Indication: SEPSIS
     Route: 042
     Dates: start: 20050211, end: 20050211

REACTIONS (2)
  - HEPATIC CIRRHOSIS [None]
  - PANCREATITIS ACUTE [None]
